FAERS Safety Report 9423516 (Version 1)
Quarter: 2013Q3

REPORT INFORMATION
  Report Type: Spontaneous
  Country: US (occurrence: US)
  Receive Date: 20130726
  Receipt Date: 20130726
  Transmission Date: 20140515
  Serious: No
  Sender: FDA-Public Use
  Company Number: US-UPSHER-SMITH LABORATORIES, INC.-13002558

PATIENT
  Sex: Male

DRUGS (5)
  1. PREVALITE [Suspect]
     Indication: DIARRHOEA
     Dosage: 4 G, QD
     Route: 048
     Dates: start: 20130715, end: 20130718
  2. PREVALITE [Suspect]
     Dosage: 4 G, QD
     Route: 048
     Dates: start: 2011, end: 2011
  3. ALIGN PROBIOTICS [Concomitant]
     Dosage: UNK
  4. VITAMIN D                          /00107901/ [Concomitant]
     Dosage: UNK
  5. ASPIRIN [Concomitant]
     Dosage: UNK

REACTIONS (1)
  - Constipation [Recovered/Resolved]
